FAERS Safety Report 24638826 (Version 2)
Quarter: 2024Q4

REPORT INFORMATION
  Report Type: Spontaneous
  Country: FI (occurrence: FI)
  Receive Date: 20241119
  Receipt Date: 20241211
  Transmission Date: 20250115
  Serious: Yes (Other)
  Sender: ASCEND THERAPEUTICS US, LLC
  Company Number: FI-Ascend Therapeutics US, LLC-2165426

PATIENT
  Age: 60 Year
  Sex: Male

DRUGS (5)
  1. ANDROGEL [Suspect]
     Active Substance: TESTOSTERONE
     Indication: Product used for unknown indication
  2. TESTOSTERONE [Suspect]
     Active Substance: TESTOSTERONE
  3. TESTOSTERONE [Suspect]
     Active Substance: TESTOSTERONE
  4. TESTOSTERONE [Suspect]
     Active Substance: TESTOSTERONE
  5. TESTOSTERONE [Suspect]
     Active Substance: TESTOSTERONE

REACTIONS (11)
  - Type 2 diabetes mellitus [Unknown]
  - Haemoglobin increased [Unknown]
  - Hypertension [Unknown]
  - Insomnia [Unknown]
  - Irritability [Unknown]
  - Genital atrophy [Unknown]
  - Weight decreased [Unknown]
  - Fatigue [Unknown]
  - Rhinorrhoea [Unknown]
  - Blood testosterone decreased [Unknown]
  - Product administration error [Unknown]
